FAERS Safety Report 25675139 (Version 1)
Quarter: 2025Q3

REPORT INFORMATION
  Report Type: Other
  Country: EU (occurrence: EU)
  Receive Date: 20250813
  Receipt Date: 20250813
  Transmission Date: 20251021
  Serious: Yes (Death)
  Sender: ANI
  Company Number: EU-ANIPHARMA-024001

PATIENT
  Age: 2 Year

DRUGS (20)
  1. CYCLOPHOSPHAMIDE [Suspect]
     Active Substance: CYCLOPHOSPHAMIDE
     Indication: Congenital teratoma
  2. VINBLASTINE [Concomitant]
     Active Substance: VINBLASTINE
     Indication: Congenital teratoma
  3. IFOSFAMIDE [Concomitant]
     Active Substance: IFOSFAMIDE
     Indication: Congenital teratoma
  4. CISPLATIN [Concomitant]
     Active Substance: CISPLATIN
     Indication: Congenital teratoma
  5. CARBOPLATIN [Concomitant]
     Active Substance: CARBOPLATIN
     Indication: Congenital teratoma
  6. ETOPOSIDE PHOSPHATE [Concomitant]
     Active Substance: ETOPOSIDE PHOSPHATE
     Indication: Congenital teratoma
  7. BLEOMYCIN [Concomitant]
     Active Substance: BLEOMYCIN SULFATE
     Indication: Congenital teratoma
  8. ETOPOSIDE [Concomitant]
     Active Substance: ETOPOSIDE
     Indication: Congenital teratoma
  9. GEMCITABINE [Concomitant]
     Active Substance: GEMCITABINE
     Indication: Congenital teratoma
  10. PACLITAXEL [Concomitant]
     Active Substance: PACLITAXEL
     Indication: Congenital teratoma
  11. ETOPOSIDE PHOSPHATE [Concomitant]
     Active Substance: ETOPOSIDE PHOSPHATE
     Indication: Metastases to liver
  12. ETOPOSIDE [Concomitant]
     Active Substance: ETOPOSIDE
     Indication: Metastases to liver
  13. GEMCITABINE [Concomitant]
     Active Substance: GEMCITABINE
     Indication: Metastases to liver
  14. PACLITAXEL [Concomitant]
     Active Substance: PACLITAXEL
     Indication: Metastases to liver
  15. BLEOMYCIN [Concomitant]
     Active Substance: BLEOMYCIN SULFATE
     Indication: Metastases to liver
  16. CARBOPLATIN [Concomitant]
     Active Substance: CARBOPLATIN
     Indication: Metastases to liver
  17. CISPLATIN [Concomitant]
     Active Substance: CISPLATIN
     Indication: Metastases to liver
  18. IFOSFAMIDE [Concomitant]
     Active Substance: IFOSFAMIDE
     Indication: Metastases to liver
  19. VINBLASTINE [Concomitant]
     Active Substance: VINBLASTINE
     Indication: Metastases to liver
  20. CYCLOPHOSPHAMIDE [Suspect]
     Active Substance: CYCLOPHOSPHAMIDE
     Indication: Metastases to liver

REACTIONS (1)
  - Drug ineffective [Fatal]
